FAERS Safety Report 6918868-3 (Version None)
Quarter: 2010Q3

REPORT INFORMATION
  Report Type: 
  Country: None (occurrence: None)
  Receive Date: 20100811
  Receipt Date: 20100729
  Transmission Date: 20110219
  Serious: Yes (Other)
  Sender: FDA-Public Use
  Company Number: US-BAYER-201018646BCC

PATIENT
  Age: 65 Year
  Sex: Female
  Weight: 71 kg

DRUGS (15)
  1. ALKA-SELTZER MORNING RELIEF [Suspect]
     Indication: PAIN
     Dosage: AS USED: 1 DF  UNIT DOSE: 1 DF
     Route: 048
     Dates: start: 20010101, end: 20070115
  2. ALKA-SELTZER MORNING RELIEF [Suspect]
     Dosage: AS USED: 1 DF  UNIT DOSE: 1 DF
     Route: 048
     Dates: start: 20070515, end: 20080306
  3. VITAMIN E [Concomitant]
     Route: 065
  4. FDC GLUCOSAMINE / CHONDROITIN [Concomitant]
     Dosage: TOTAL DAILY DOSE: 1500 MG  UNIT DOSE: 500 MG
     Route: 065
  5. FDC EYE VITAMIN WITH LUTEIN [Concomitant]
  6. LOVAZA [Concomitant]
     Route: 065
  7. SENIOR WOMEN'S MULTIVITAMIN [Concomitant]
  8. LEVOTHYROXINE [Concomitant]
     Route: 065
  9. HYDROCHLOROTHIAZIDE [Concomitant]
     Route: 065
  10. FOSAMAX [Concomitant]
     Route: 065
  11. ALENDRONATE SODIUM [Concomitant]
     Route: 065
  12. GABAPENTIN [Concomitant]
     Route: 065
  13. HYDROCODONE [Concomitant]
     Route: 065
  14. SUMTRIPTAN [Concomitant]
     Route: 065
  15. ALKA-SELTZER WAKE-UP CALL [Concomitant]
     Indication: PAIN
     Dosage: BOTTLE COUNT 16S
     Route: 048
     Dates: start: 20080706, end: 20100101

REACTIONS (1)
  - SPINAL COLUMN STENOSIS [None]
